FAERS Safety Report 18306620 (Version 1)
Quarter: 2020Q3

REPORT INFORMATION
  Report Type: Spontaneous
  Country: US (occurrence: US)
  Receive Date: 20200923
  Receipt Date: 20200923
  Transmission Date: 20201103
  Serious: Yes (Hospitalization)
  Sender: FDA-Public Use
  Company Number: None

PATIENT
  Age: 88 Year
  Sex: Male
  Weight: 117.48 kg

DRUGS (2)
  1. WARFARIN (WARFARIN NA (EXELAN) 10MG TAB) [Suspect]
     Active Substance: WARFARIN SODIUM
     Indication: DEEP VEIN THROMBOSIS
     Dates: start: 20090914
  2. WARFARIN (WARFARIN NA (EXELAN) 10MG TAB) [Suspect]
     Active Substance: WARFARIN SODIUM
     Indication: PULMONARY EMBOLISM
     Dates: start: 20090914

REACTIONS (7)
  - Haemoglobin abnormal [None]
  - Gastrointestinal haemorrhage [None]
  - Chronic kidney disease [None]
  - Normocytic anaemia [None]
  - Therapy interrupted [None]
  - Occult blood positive [None]
  - International normalised ratio increased [None]

NARRATIVE: CASE EVENT DATE: 20200914
